FAERS Safety Report 5137034-8 (Version None)
Quarter: 2006Q4

REPORT INFORMATION
  Report Type: 
  Country: None (occurrence: None)
  Receive Date: 20061024
  Receipt Date: 20061024
  Transmission Date: 20070319
  Serious: Yes (Hospitalization, Other)
  Sender: FDA-Public Use
  Company Number: None

PATIENT
  Age: 60 Year
  Sex: Male

DRUGS (7)
  1. AUGMENTIN '125' [Suspect]
     Dates: start: 20050725, end: 20050803
  2. SINGULAIR [Concomitant]
  3. COZAAR [Concomitant]
  4. SYNTHROID [Concomitant]
  5. ADVAIR HFA [Concomitant]
  6. SINGULAIR INHALER [Concomitant]
  7. ALBUTEROL [Concomitant]

REACTIONS (4)
  - CHOLESTASIS [None]
  - DEHYDRATION [None]
  - HEPATIC TRAUMA [None]
  - INCORRECT DOSE ADMINISTERED [None]
